FAERS Safety Report 8135014-1 (Version None)
Quarter: 2012Q1

REPORT INFORMATION
  Report Type: 
  Country: None (occurrence: None)
  Receive Date: 20120214
  Receipt Date: 20120209
  Transmission Date: 20120608
  Serious: Yes (Other)
  Sender: FDA-Public Use
  Company Number: US-PFIZER INC-2011275894

PATIENT
  Sex: Male
  Weight: 2.99 kg

DRUGS (4)
  1. SERTRALINE HYDROCHLORIDE [Suspect]
     Dosage: 100 MG, UNK
     Route: 064
  2. PREVACID [Concomitant]
     Route: 064
  3. SERTRALINE HYDROCHLORIDE [Suspect]
     Dosage: 50 MG, UNK
     Route: 064
  4. MULTI-VITAMINS [Concomitant]
     Route: 064

REACTIONS (2)
  - CONGENITAL ANOMALY [None]
  - FOETAL EXPOSURE DURING PREGNANCY [None]
